FAERS Safety Report 4429716-8 (Version None)
Quarter: 2004Q3

REPORT INFORMATION
  Report Type: 
  Country: None (occurrence: None)
  Receive Date: 20040820
  Receipt Date: 20040810
  Transmission Date: 20050211
  Serious: Yes (Other)
  Sender: FDA-Public Use
  Company Number: US-JNJFOC-20040803265

PATIENT
  Age: 18 Year
  Sex: Female

DRUGS (2)
  1. REMICADE [Suspect]
     Indication: DRUG USE FOR UNKNOWN INDICATION
     Route: 042
  2. PREDNISONE [Concomitant]

REACTIONS (3)
  - INFUSION RELATED REACTION [None]
  - PYREXIA [None]
  - ROAD TRAFFIC ACCIDENT [None]
